FAERS Safety Report 21151943 (Version 1)
Quarter: 2022Q3

REPORT INFORMATION
  Report Type: Spontaneous
  Country: US (occurrence: US)
  Receive Date: 20220730
  Receipt Date: 20220730
  Transmission Date: 20221026
  Serious: No
  Sender: FDA-Public Use
  Company Number: US-SA-SAC20220722000247

PATIENT
  Age: 10 Year
  Sex: Male
  Weight: 29 kg

DRUGS (3)
  1. DUPIXENT [Suspect]
     Active Substance: DUPILUMAB
     Indication: Dermatitis atopic
     Dosage: 300MG , Q4W
     Route: 058
     Dates: start: 202101
  2. VITAMINS NOS [Concomitant]
     Active Substance: VITAMINS
     Dosage: QD
  3. ZYRTEC [Concomitant]
     Active Substance: CETIRIZINE HYDROCHLORIDE

REACTIONS (4)
  - Injection site pain [Not Recovered/Not Resolved]
  - Injection site mass [Not Recovered/Not Resolved]
  - Hordeolum [Not Recovered/Not Resolved]
  - Lack of injection site rotation [Unknown]
